FAERS Safety Report 11335740 (Version 1)
Quarter: 2015Q3

REPORT INFORMATION
  Report Type: Spontaneous
  Country: US (occurrence: None)
  Receive Date: 20150731
  Receipt Date: 20150731
  Transmission Date: 20151125
  Serious: Yes (Hospitalization)
  Sender: FDA-Public Use
  Company Number: None

PATIENT
  Age: 64 Year
  Sex: Male
  Weight: 111.3 kg

DRUGS (2)
  1. PIOGLITAZONE. [Suspect]
     Active Substance: PIOGLITAZONE
     Indication: DIABETES MELLITUS
     Route: 048
     Dates: start: 20131101, end: 20150514
  2. PIOGLITAZONE. [Suspect]
     Active Substance: PIOGLITAZONE
     Indication: BLADDER CANCER
     Route: 048
     Dates: start: 20131101, end: 20150514

REACTIONS (2)
  - Nephrolithiasis [None]
  - Bladder cancer recurrent [None]

NARRATIVE: CASE EVENT DATE: 20150507
